FAERS Safety Report 15074631 (Version 1)
Quarter: 2018Q2

REPORT INFORMATION
  Report Type: Spontaneous
  Country: US (occurrence: US)
  Receive Date: 20180627
  Receipt Date: 20180627
  Transmission Date: 20180711
  Serious: Yes (Other)
  Sender: FDA-Public Use
  Company Number: US-SAOL THERAPEUTICS-2018SAO00424

PATIENT
  Age: 51 Year
  Sex: Male
  Weight: 89.8 kg

DRUGS (4)
  1. BACLOFEN. [Concomitant]
     Active Substance: BACLOFEN
     Route: 048
  2. COMPOUNDED BACLOFEN [Suspect]
     Active Substance: BACLOFEN
     Dosage: 868 ?G, \DAY
     Route: 037
  3. COMPOUNDED BACLOFEN [Suspect]
     Active Substance: BACLOFEN
     Dosage: 898.2 ?G, \DAY
     Route: 037
     Dates: start: 20180306, end: 20180606
  4. COMPOUNDED BACLOFEN [Suspect]
     Active Substance: BACLOFEN
     Dosage: UNK, MINIMUM RATE
     Route: 037
     Dates: start: 20180606

REACTIONS (5)
  - Musculoskeletal stiffness [Recovered/Resolved]
  - Overdose [Recovered/Resolved]
  - Device damage [Recovered/Resolved]
  - Gait disturbance [Recovered/Resolved]
  - Device infusion issue [Recovered/Resolved]

NARRATIVE: CASE EVENT DATE: 201712
